FAERS Safety Report 12700159 (Version 6)
Quarter: 2019Q2

REPORT INFORMATION
  Report Type: Spontaneous
  Country: CA (occurrence: CA)
  Receive Date: 20160830
  Receipt Date: 20190502
  Transmission Date: 20190711
  Serious: Yes (Disabling, Other)
  Sender: FDA-Public Use
  Company Number: CA-PFIZER INC-2016138475

PATIENT
  Age: 46 Year
  Sex: Female
  Weight: 121.7 kg

DRUGS (20)
  1. BISOPROLOL [Concomitant]
     Active Substance: BISOPROLOL
     Dosage: 100 MG, 1X/DAY
     Dates: start: 201601
  2. ACETAMINOPHEN AND CODEINE [Concomitant]
     Active Substance: ACETAMINOPHEN\CODEINE PHOSPHATE
     Dosage: 30 MILLIGRAM
  3. METHOTREXATE SODIUM. [Suspect]
     Active Substance: METHOTREXATE SODIUM
     Dosage: 12.5 MG, WEEKLY
     Route: 058
  4. ACTEMRA [Suspect]
     Active Substance: TOCILIZUMAB
     Dosage: UNK
     Route: 065
  5. VITAMIN D2 [Concomitant]
     Active Substance: ERGOCALCIFEROL
     Dosage: UNK, 1X/DAY
  6. FLUOXETINE HYDROCHLORIDE. [Concomitant]
     Active Substance: FLUOXETINE HYDROCHLORIDE
     Dosage: 30 MILLIGRAM, QD
  7. ENBREL [Suspect]
     Active Substance: ETANERCEPT
     Indication: RHEUMATOID ARTHRITIS
     Dosage: 50 MG, WEEKLY
     Route: 058
     Dates: end: 2016
  8. EMTEC [Concomitant]
     Dosage: 30 MG, AS NEEDED (UP TO 6X/DAY)
     Dates: start: 2007
  9. DEXAMETHASONE. [Concomitant]
     Active Substance: DEXAMETHASONE
     Dosage: 4 MG, 1X/DAY
     Dates: end: 20160227
  10. SUCRALFATE. [Concomitant]
     Active Substance: SUCRALFATE
     Dosage: 1 GRAM, BID
  11. CANDESARTAN. [Concomitant]
     Active Substance: CANDESARTAN
     Dosage: 12.5 MG, DAILY
     Dates: start: 201601
  12. FOLIC ACID. [Concomitant]
     Active Substance: FOLIC ACID
     Dosage: UNK, 1X/DAY
  13. PANTOPRAZOLE [Concomitant]
     Active Substance: PANTOPRAZOLE
     Dosage: 40 MG, 2X/DAY
  14. ERGOCALCIFEROL. [Concomitant]
     Active Substance: ERGOCALCIFEROL
     Dosage: UNK UNK, QD
  15. METHOTREXATE SODIUM. [Suspect]
     Active Substance: METHOTREXATE SODIUM
     Indication: RHEUMATOID ARTHRITIS
     Dosage: 20 MG, WEEKLY (TUESDAY)
     Route: 058
  16. PROXETINE [Concomitant]
     Dosage: 30 MG, DAILY
     Dates: start: 1997
  17. TEMAZEPAM. [Concomitant]
     Active Substance: TEMAZEPAM
     Dosage: 15-30 MG, AS NEEDED
     Dates: start: 2007
  18. XELJANZ [Concomitant]
     Active Substance: TOFACITINIB CITRATE
     Dosage: 5 MG, 2X/DAY
     Route: 048
     Dates: end: 20170227
  19. PREDNISONE. [Concomitant]
     Active Substance: PREDNISONE
     Dosage: 20 MG, SINGLE (ONCE)
     Dates: start: 20170228
  20. APO-SUCRALFATE [Concomitant]
     Dosage: 1 G, 2X/DAY
     Dates: start: 20161221

REACTIONS (6)
  - Lymphadenopathy [Not Recovered/Not Resolved]
  - Rash [Not Recovered/Not Resolved]
  - Liver disorder [Not Recovered/Not Resolved]
  - Liver injury [Not Recovered/Not Resolved]
  - Sjogren^s syndrome [Not Recovered/Not Resolved]
  - Condition aggravated [Unknown]

NARRATIVE: CASE EVENT DATE: 2016
